FAERS Safety Report 7469336-4 (Version None)
Quarter: 2011Q2

REPORT INFORMATION
  Report Type: 
  Country: None (occurrence: None)
  Receive Date: 20110510
  Receipt Date: 20110505
  Transmission Date: 20111010
  Serious: Yes (Death, Other)
  Sender: FDA-Public Use
  Company Number: JP-SANOFI-AVENTIS-2011SA018178

PATIENT
  Age: 69 Year
  Sex: Male

DRUGS (2)
  1. XELODA [Suspect]
     Indication: LARGE INTESTINE CARCINOMA
     Route: 048
     Dates: start: 20110308, end: 20110320
  2. OXALIPLATIN [Suspect]
     Indication: LARGE INTESTINE CARCINOMA
     Route: 041
     Dates: start: 20110308, end: 20110308

REACTIONS (11)
  - ASPIRATION [None]
  - LOSS OF CONSCIOUSNESS [None]
  - PANCYTOPENIA [None]
  - NEUTROPHIL COUNT DECREASED [None]
  - ALTERED STATE OF CONSCIOUSNESS [None]
  - PLATELET COUNT DECREASED [None]
  - RESPIRATORY ARREST [None]
  - DIARRHOEA [None]
  - PYREXIA [None]
  - FEBRILE NEUTROPENIA [None]
  - WHITE BLOOD CELL COUNT DECREASED [None]
